FAERS Safety Report 8436929-7 (Version None)
Quarter: 2012Q2

REPORT INFORMATION
  Report Type: 
  Country: None (occurrence: None)
  Receive Date: 20120614
  Receipt Date: 20111221
  Transmission Date: 20120825
  Serious: No
  Sender: FDA-Public Use
  Company Number: US-AMGEN-USASP2011068064

PATIENT
  Sex: Male

DRUGS (2)
  1. ARANESP [Suspect]
     Indication: ANAEMIA OF CHRONIC DISEASE
     Dosage: UNK
     Dates: start: 20111201
  2. ARANESP [Suspect]
     Indication: RENAL FAILURE CHRONIC

REACTIONS (5)
  - FEELING HOT [None]
  - MALAISE [None]
  - PROCEDURAL HYPOTENSION [None]
  - HYPERHIDROSIS [None]
  - HEART RATE INCREASED [None]
